FAERS Safety Report 13777744 (Version 1)
Quarter: 2017Q3

REPORT INFORMATION
  Report Type: Spontaneous
  Country: US (occurrence: US)
  Receive Date: 20170721
  Receipt Date: 20170721
  Transmission Date: 20171127
  Serious: No
  Sender: FDA-Public Use
  Company Number: US-CIPLA LTD.-2017US08128

PATIENT

DRUGS (6)
  1. WARFARIN [Suspect]
     Active Substance: WARFARIN
     Indication: ANTICOAGULANT THERAPY
     Dosage: 12.5 MG, QD (10 MG TAB AND HALF TABLET OF 5 MG), ON MON, WED AND FRI AND 10 MG ON OTHER DAYS
     Route: 048
     Dates: start: 20170413, end: 20170427
  2. DIGOXIN. [Concomitant]
     Active Substance: DIGOXIN
     Dosage: 250 MCG, QD
     Route: 065
  3. ARMOUR THYROID [Concomitant]
     Active Substance: THYROID, PORCINE
     Dosage: 90 MG, QD
     Route: 065
  4. LEVOTHYROXINE. [Concomitant]
     Active Substance: LEVOTHYROXINE
     Dosage: 25 MCG, QD
     Route: 065
  5. METOPROLOL TARTARATE [Concomitant]
     Active Substance: METOPROLOL TARTRATE
     Dosage: 12.5 MG, UNK
     Route: 048
  6. WARFARIN [Suspect]
     Active Substance: WARFARIN
     Dosage: UNK

REACTIONS (1)
  - International normalised ratio decreased [Not Recovered/Not Resolved]

NARRATIVE: CASE EVENT DATE: 20170420
